FAERS Safety Report 23505632 (Version 4)
Quarter: 2024Q2

REPORT INFORMATION
  Report Type: Report from Study
  Country: DE (occurrence: DE)
  Receive Date: 20240209
  Receipt Date: 20240430
  Transmission Date: 20240715
  Serious: Yes (Death, Hospitalization)
  Sender: FDA-Public Use
  Company Number: DE-ABBVIE-5630057

PATIENT
  Age: 80 Year
  Sex: Female
  Weight: 43 kg

DRUGS (2)
  1. CARBIDOPA\LEVODOPA [Suspect]
     Active Substance: CARBIDOPA\LEVODOPA
     Indication: Parkinson^s disease
     Dosage: MD 8.5ML; CRD 3.0ML/H; ED 2.0ML
     Route: 050
     Dates: start: 20171207
  2. CARBIDOPA\LEVODOPA [Suspect]
     Active Substance: CARBIDOPA\LEVODOPA

REACTIONS (8)
  - Death [Fatal]
  - Device issue [Recovered/Resolved]
  - Abdominal pain upper [Unknown]
  - Puncture site haemorrhage [Unknown]
  - Flatulence [Unknown]
  - Abdominal pain [Unknown]
  - Device dislocation [Unknown]
  - Puncture site discharge [Unknown]

NARRATIVE: CASE EVENT DATE: 20240202
